FAERS Safety Report 7443134-X (Version None)
Quarter: 2011Q2

REPORT INFORMATION
  Report Type: 
  Country: None (occurrence: None)
  Receive Date: 20110428
  Receipt Date: 20100601
  Transmission Date: 20111010
  Serious: Yes (Other)
  Sender: FDA-Public Use
  Company Number: A0862248A

PATIENT
  Age: 22 Year
  Sex: Male

DRUGS (5)
  1. VIMPAT [Concomitant]
  2. LAMICTAL XR [Suspect]
     Indication: EPILEPSY
     Route: 048
     Dates: start: 20090101
  3. KEPPRA [Concomitant]
     Dates: end: 20101223
  4. MULTI-VITAMIN [Concomitant]
  5. IBUPROFEN [Concomitant]

REACTIONS (17)
  - PALPITATIONS [None]
  - EYE MOVEMENT DISORDER [None]
  - NAUSEA [None]
  - INFLUENZA [None]
  - OVERDOSE [None]
  - DRUG LEVEL DECREASED [None]
  - VISION BLURRED [None]
  - AURA [None]
  - PYREXIA [None]
  - PRURITUS [None]
  - CONVULSION [None]
  - DIZZINESS [None]
  - FEELING HOT [None]
  - ERYTHEMA [None]
  - FLUSHING [None]
  - DRUG INEFFECTIVE [None]
  - HEADACHE [None]
